FAERS Safety Report 10573398 (Version 1)
Quarter: 2014Q4

REPORT INFORMATION
  Report Type: Spontaneous
  Country: FR (occurrence: FR)
  Receive Date: 20141110
  Receipt Date: 20141110
  Transmission Date: 20150529
  Serious: Yes (Other)
  Sender: FDA-Public Use
  Company Number: FR-SA-2014SA150172

PATIENT
  Age: 61 Year
  Sex: Male

DRUGS (12)
  1. LANTUS [Suspect]
     Active Substance: INSULIN GLARGINE
     Indication: DIABETES MELLITUS
     Route: 058
     Dates: start: 20140611
  2. CLOXACILLIN [Suspect]
     Active Substance: CLOXACILLIN
     Indication: STAPHYLOCOCCAL BACTERAEMIA
     Route: 042
     Dates: start: 20140602, end: 20140610
  3. ELISOR [Concomitant]
     Active Substance: PRAVASTATIN SODIUM
  4. GENTAMICIN. [Concomitant]
     Active Substance: GENTAMICIN
     Indication: STAPHYLOCOCCAL SEPSIS
     Route: 042
     Dates: start: 20140531, end: 20140606
  5. INEXIUM [Concomitant]
     Active Substance: ESOMEPRAZOLE
     Dates: start: 20140531
  6. ACUPAN [Concomitant]
     Active Substance: NEFOPAM HYDROCHLORIDE
  7. ATARAX [Concomitant]
     Active Substance: HYDROXYZINE\HYDROXYZINE HYDROCHLORIDE
  8. RIFADINE [Concomitant]
     Active Substance: RIFAMPIN
  9. BISOPROLOL [Concomitant]
     Active Substance: BISOPROLOL
     Dates: start: 20140604
  10. APROVEL [Concomitant]
     Active Substance: IRBESARTAN
  11. NOVORAPID [Suspect]
     Active Substance: INSULIN ASPART
     Indication: DIABETES MELLITUS
     Route: 042
     Dates: start: 20140531, end: 20140610
  12. BISOPROLOL [Concomitant]
     Active Substance: BISOPROLOL

REACTIONS (2)
  - Hypokalaemia [Recovered/Resolved]
  - Electrocardiogram QT prolonged [Recovered/Resolved]

NARRATIVE: CASE EVENT DATE: 20140603
